FAERS Safety Report 4999487-5 (Version None)
Quarter: 2006Q2

REPORT INFORMATION
  Report Type: 
  Country: None (occurrence: None)
  Receive Date: 20060509
  Receipt Date: 20060509
  Transmission Date: 20061013
  Serious: Yes (Other)
  Sender: FDA-Public Use
  Company Number: None

PATIENT
  Age: 46 Year
  Sex: Male

DRUGS (1)
  1. ULTRAVIST 300 [Suspect]
     Indication: NEOPLASM MALIGNANT
     Dosage: 125 CC IV
     Route: 042

REACTIONS (5)
  - DYSPHONIA [None]
  - EYELID OEDEMA [None]
  - LARYNGEAL OEDEMA [None]
  - THROAT TIGHTNESS [None]
  - URTICARIA [None]
